FAERS Safety Report 9542819 (Version 3)
Quarter: 2013Q4

REPORT INFORMATION
  Report Type: Spontaneous
  Country: US (occurrence: US)
  Receive Date: 20130923
  Receipt Date: 20131114
  Transmission Date: 20140711
  Serious: No
  Sender: FDA-Public Use
  Company Number: US-PFIZER INC-2013270234

PATIENT
  Age: 77 Year
  Sex: Female

DRUGS (16)
  1. TIKOSYN [Suspect]
     Indication: ATRIAL FIBRILLATION
     Dosage: 125 UG, 2X/DAY
     Route: 048
     Dates: start: 20130819
  2. FOSAMAX [Concomitant]
     Dosage: 70 MG, EVERY WEEK
  3. VITAMIN D [Concomitant]
     Dosage: UNK
  4. RIVAROXABAN [Concomitant]
     Dosage: QHS
     Route: 048
  5. GABAPENTIN [Concomitant]
     Dosage: 300 UNK, QHS
     Route: 048
  6. MAGNESIUM [Concomitant]
     Dosage: 250 MG, DAILY
     Route: 048
  7. LOPRESSOR [Concomitant]
     Dosage: 12.5 MG, 2X/DAY
     Route: 048
  8. PRILOSEC [Concomitant]
     Dosage: 20 MG, 1X/DAY
  9. MACRODANTIN [Concomitant]
     Dosage: UNK
  10. K-DUR [Concomitant]
     Dosage: 20 MEQ, 1X/DAY
     Route: 048
  11. PREDNISONE [Concomitant]
     Dosage: 5 MG, 1X/DAY
     Route: 048
  12. ULTRAM [Concomitant]
     Dosage: UNK
  13. ALBUTEROL [Concomitant]
     Dosage: UNK
     Route: 055
  14. METOPROLOL [Concomitant]
     Dosage: 12.5 MG, 2X/DAY
     Route: 048
  15. XARELTO [Concomitant]
     Dosage: 20 MG, 1X/DAY (QHS)
     Route: 048
  16. MAGNESIUM OXIDE [Concomitant]
     Dosage: 250 MG, 1X/DAY
     Route: 048

REACTIONS (1)
  - Neuropathy peripheral [Unknown]
